FAERS Safety Report 8449631-2 (Version None)
Quarter: 2012Q2

REPORT INFORMATION
  Report Type: 
  Country: None (occurrence: None)
  Receive Date: 20120620
  Receipt Date: 20120613
  Transmission Date: 20120825
  Serious: Yes (Hospitalization)
  Sender: FDA-Public Use
  Company Number: US-BIOGENIDEC-2012BI010536

PATIENT
  Age: 61 Year
  Sex: Female

DRUGS (4)
  1. AVONEX [Suspect]
     Route: 030
     Dates: start: 20080527, end: 20090311
  2. AVONEX [Suspect]
     Route: 030
     Dates: start: 20110820
  3. AVONEX [Suspect]
     Indication: MULTIPLE SCLEROSIS
     Route: 030
     Dates: start: 20050404, end: 20060306
  4. AVONEX [Suspect]
     Route: 030
     Dates: start: 20100401

REACTIONS (4)
  - MUSCLE SPASMS [None]
  - CONFUSIONAL STATE [None]
  - FALL [None]
  - HIP FRACTURE [None]
